FAERS Safety Report 5039998-X (Version None)
Quarter: 2006Q2

REPORT INFORMATION
  Report Type: 
  Country: None (occurrence: None)
  Receive Date: 20060630
  Receipt Date: 20020320
  Transmission Date: 20061013
  Serious: Yes (Death)
  Sender: FDA-Public Use
  Company Number: JP-BRISTOL-MYERS SQUIBB COMPANY-11783750

PATIENT
  Age: 38 Year
  Sex: Female

DRUGS (5)
  1. SOTALOL HCL [Suspect]
     Indication: VENTRICULAR TACHYCARDIA
     Route: 048
     Dates: start: 19990507, end: 19991006
  2. PROCAINAMIDE HCL [Suspect]
     Route: 042
     Dates: start: 19991018, end: 19991019
  3. LIDOCAINE [Concomitant]
     Route: 042
     Dates: start: 19990531, end: 19990601
  4. MEXITIL [Concomitant]
     Route: 048
     Dates: start: 19990602, end: 19990813
  5. ASPENON [Concomitant]
     Route: 048
     Dates: start: 19990829, end: 19990927

REACTIONS (1)
  - VENTRICULAR TACHYCARDIA [None]
